FAERS Safety Report 12384518 (Version 1)
Quarter: 2016Q2

REPORT INFORMATION
  Report Type: Spontaneous
  Country: US (occurrence: None)
  Receive Date: 20160518
  Receipt Date: 20160518
  Transmission Date: 20160815
  Serious: Yes (Other)
  Sender: FDA-Public Use
  Company Number: None

PATIENT
  Age: 38 Year
  Sex: Female
  Weight: 60.33 kg

DRUGS (8)
  1. OXYCODONE [Concomitant]
     Active Substance: OXYCODONE
  2. HUMALOG [Concomitant]
     Active Substance: INSULIN LISPRO
  3. RITALIN [Concomitant]
     Active Substance: METHYLPHENIDATE HYDROCHLORIDE
  4. MULTIVITAMIN [Concomitant]
     Active Substance: VITAMINS
  5. OXYCODONE HCL 20 MG TABLET RHO, 20 MG [Suspect]
     Active Substance: OXYCODONE HYDROCHLORIDE
     Indication: THORACIC OUTLET SYNDROME
     Route: 048
     Dates: start: 20160505, end: 20160517
  6. LANTUS [Concomitant]
     Active Substance: INSULIN GLARGINE
  7. OXYCODONE HCL 20 MG TABLET RHO, 20 MG [Suspect]
     Active Substance: OXYCODONE HYDROCHLORIDE
     Indication: FIBROMYALGIA
     Route: 048
     Dates: start: 20160505, end: 20160517
  8. VITAMIN D3 [Concomitant]
     Active Substance: CHOLECALCIFEROL

REACTIONS (10)
  - Tremor [None]
  - Drug ineffective [None]
  - Malaise [None]
  - Quality of life decreased [None]
  - Product substitution issue [None]
  - Headache [None]
  - Nausea [None]
  - Depression [None]
  - Product quality issue [None]
  - Constipation [None]

NARRATIVE: CASE EVENT DATE: 20160505
